FAERS Safety Report 4815357-7 (Version None)
Quarter: 2005Q4

REPORT INFORMATION
  Report Type: 
  Country: None (occurrence: None)
  Receive Date: 20051027
  Receipt Date: 20051017
  Transmission Date: 20060501
  Serious: Yes (Other)
  Sender: FDA-Public Use
  Company Number: 2005PV003259

PATIENT
  Sex: Female

DRUGS (1)
  1. BYETTA [Suspect]
     Dosage: 5 MCG; SC
     Route: 058
     Dates: start: 20050101

REACTIONS (4)
  - ARRHYTHMIA [None]
  - NAUSEA [None]
  - PALPITATIONS [None]
  - VOMITING [None]
